FAERS Safety Report 25979393 (Version 1)
Quarter: 2025Q4

REPORT INFORMATION
  Report Type: Spontaneous
  Country: EU (occurrence: EU)
  Receive Date: 20251030
  Receipt Date: 20251030
  Transmission Date: 20260119
  Serious: Yes (Other)
  Sender: RANBAXY
  Company Number: EU-AFSSAPS-CN2025000724

PATIENT
  Age: 70 Year
  Sex: Male
  Weight: 106 kg

DRUGS (25)
  1. OXALIPLATIN [Suspect]
     Active Substance: OXALIPLATIN
     Indication: Rectal adenocarcinoma
     Dosage: 85MG/M? C1, IN TOTAL
     Route: 040
     Dates: start: 20250505, end: 20250505
  2. OXALIPLATIN [Suspect]
     Active Substance: OXALIPLATIN
     Dosage: 85MG/M? C2, IN TOTAL
     Route: 040
     Dates: start: 20250521, end: 20250521
  3. IRINOTECAN [Suspect]
     Active Substance: IRINOTECAN
     Indication: Rectal adenocarcinoma
     Dosage: 180 MG/M? C1, IN TOTAL
     Route: 040
     Dates: start: 20250505, end: 20250505
  4. IRINOTECAN [Suspect]
     Active Substance: IRINOTECAN
     Dosage: 180 MG/M? C2, IN TOTAL
     Route: 040
     Dates: start: 20250521, end: 20250521
  5. IRINOTECAN [Suspect]
     Active Substance: IRINOTECAN
     Dosage: 180 MG/M? C3, IN TOTAL
     Route: 040
     Dates: start: 20250605, end: 20250605
  6. FLUOROURACIL [Suspect]
     Active Substance: FLUOROURACIL
     Indication: Rectal adenocarcinoma
     Dosage: 2400 MG/M? C1, IN TOTAL
     Route: 040
     Dates: start: 20250505, end: 20250506
  7. FLUOROURACIL [Suspect]
     Active Substance: FLUOROURACIL
     Dosage: 2400 MG/M? C2, IN TOTAL
     Route: 040
     Dates: start: 20250521, end: 20250522
  8. FLUOROURACIL [Suspect]
     Active Substance: FLUOROURACIL
     Dosage: 2400 MG/M? C3, IN TOTAL
     Route: 040
     Dates: start: 20250605, end: 20250606
  9. CALCIUM [Suspect]
     Active Substance: CALCIUM
     Indication: Rectal adenocarcinoma
     Dosage: C1, IN TOTAL
     Route: 040
     Dates: start: 20250505, end: 20250506
  10. CALCIUM [Suspect]
     Active Substance: CALCIUM
     Dosage: C2, IN TOTAL
     Route: 040
     Dates: start: 20250521, end: 20250522
  11. CALCIUM [Suspect]
     Active Substance: CALCIUM
     Dosage: C3, IN TOTAL
     Route: 040
     Dates: start: 20250605, end: 20250606
  12. APREPITANT [Suspect]
     Active Substance: APREPITANT
     Indication: Antiemetic supportive care
     Dosage: C1J1, IN TOTAL
     Route: 048
     Dates: start: 20250505, end: 20250505
  13. APREPITANT [Suspect]
     Active Substance: APREPITANT
     Dosage: C1J2 ET C1J3, IN TOTAL
     Route: 048
     Dates: start: 20250506, end: 20250507
  14. APREPITANT [Suspect]
     Active Substance: APREPITANT
     Dosage: C2J1, IN TOTAL
     Route: 048
     Dates: start: 20250521, end: 20250521
  15. APREPITANT [Suspect]
     Active Substance: APREPITANT
     Dosage: C2J2 ET C2J3, IN TOTAL
     Route: 048
     Dates: start: 20250522, end: 20250523
  16. APREPITANT [Suspect]
     Active Substance: APREPITANT
     Dosage: C3J1, IN TOTAL
     Route: 048
     Dates: start: 20250605, end: 20250605
  17. APREPITANT [Suspect]
     Active Substance: APREPITANT
     Dosage: C3J1, IN TOTAL
     Route: 048
     Dates: start: 20250606, end: 20250607
  18. ONDANSETRON [Suspect]
     Active Substance: ONDANSETRON
     Indication: Antiemetic supportive care
     Dosage: C1J1, IN TOTAL
     Route: 048
     Dates: start: 20250505, end: 20250505
  19. ONDANSETRON [Suspect]
     Active Substance: ONDANSETRON
     Dosage: C2J1, IN TOTAL
     Route: 048
     Dates: start: 20250521, end: 20250521
  20. ONDANSETRON [Suspect]
     Active Substance: ONDANSETRON
     Dosage: C3J1, IN TOTAL
     Route: 048
     Dates: start: 20250605, end: 20250605
  21. METHYLPREDNISOLONE [Suspect]
     Active Substance: METHYLPREDNISOLONE
     Indication: Antiemetic supportive care
     Dosage: C1J1, IN TOTAL
     Route: 048
     Dates: start: 20250505, end: 20250505
  22. METHYLPREDNISOLONE [Suspect]
     Active Substance: METHYLPREDNISOLONE
     Dosage: C2J1, IN TOTAL
     Route: 048
     Dates: start: 20250521, end: 20250521
  23. METHYLPREDNISOLONE [Suspect]
     Active Substance: METHYLPREDNISOLONE
     Dosage: C3J1, IN TOTAL
     Route: 048
     Dates: start: 20250605, end: 20250605
  24. BILASTINE [Suspect]
     Active Substance: BILASTINE
     Indication: Idiopathic histaminergic angioedema
     Dosage: 20 MILLIGRAM, DAILY
     Route: 048
     Dates: start: 2021, end: 20250602
  25. LEVOCETIRIZINE [Concomitant]
     Active Substance: LEVOCETIRIZINE
     Indication: Idiopathic histaminergic angioedema
     Dosage: 10 MILLIGRAM, DAILY
     Route: 048
     Dates: start: 20250602

REACTIONS (1)
  - Palpitations [Recovered/Resolved]
